FAERS Safety Report 20244752 (Version 1)
Quarter: 2021Q4

REPORT INFORMATION
  Report Type: Spontaneous
  Country: US (occurrence: US)
  Receive Date: 20211229
  Receipt Date: 20211229
  Transmission Date: 20220303
  Serious: Yes (Hospitalization)
  Sender: FDA-Public Use
  Company Number: US-BIOVITRUM-2021US8561

PATIENT
  Age: 9 Month
  Sex: Male

DRUGS (7)
  1. SYNAGIS [Suspect]
     Active Substance: PALIVIZUMAB
     Indication: Antiviral prophylaxis
     Route: 030
     Dates: start: 202103, end: 2021
  2. SYNAGIS [Suspect]
     Active Substance: PALIVIZUMAB
     Indication: Ventricular septal defect
     Dosage: 1ML P KG (50MG/0.5ML, 100MG/ML), 15 MG/KG, MONTHLY
     Route: 030
     Dates: start: 20210827, end: 2021
  3. SYNAGIS [Suspect]
     Active Substance: PALIVIZUMAB
     Indication: Pulmonary artery atresia
     Route: 030
     Dates: start: 2021, end: 2021
  4. SYNAGIS [Suspect]
     Active Substance: PALIVIZUMAB
     Indication: Congenital great vessel anomaly
     Route: 030
     Dates: start: 2021
  5. DIGOXIN [Concomitant]
     Active Substance: DIGOXIN
     Indication: Product used for unknown indication
     Route: 065
  6. AMOXICILLIN [Concomitant]
     Active Substance: AMOXICILLIN
     Indication: Product used for unknown indication
     Route: 065
  7. PLAVIX [Concomitant]
     Active Substance: CLOPIDOGREL BISULFATE
     Indication: Product used for unknown indication
     Route: 065

REACTIONS (1)
  - Ill-defined disorder [Unknown]

NARRATIVE: CASE EVENT DATE: 20211126
